FAERS Safety Report 9404393 (Version 2)
Quarter: 2013Q3

REPORT INFORMATION
  Report Type: Spontaneous
  Country: US (occurrence: None)
  Receive Date: 20130711
  Receipt Date: 20130829
  Transmission Date: 20140515
  Serious: Yes (Hospitalization, Other)
  Sender: FDA-Public Use
  Company Number: DSU-2013-03799

PATIENT
  Age: 57 Year
  Sex: Female

DRUGS (5)
  1. OLMESARTAN MEDOXOMIL [Suspect]
     Indication: HYPERTENSION
     Route: 048
  2. AMLODIPINE (AMLODIPINE) (AMLODIPINE) [Concomitant]
  3. BISOPROLOL (BISOPROLOL) (BISOPROLOL) [Concomitant]
  4. HYDROCHLOROTHIAZIDE (HYDROCHLOROTHIAZIDE) (HYDROCHLOROTHIAZIDE) [Concomitant]
  5. OMEPRAZOLE (OMEPRAZOLE) (OMEPRAZOLE) [Concomitant]

REACTIONS (11)
  - Diarrhoea [None]
  - Nausea [None]
  - Vomiting [None]
  - Abdominal tenderness [None]
  - Oedema peripheral [None]
  - Protein total decreased [None]
  - Blood albumin decreased [None]
  - Hypophagia [None]
  - Malabsorption [None]
  - Escherichia test positive [None]
  - Streptococcus test positive [None]
